FAERS Safety Report 9149789 (Version 1)
Quarter: 2013Q1

REPORT INFORMATION
  Report Type: Spontaneous
  Country: US (occurrence: None)
  Receive Date: 20130228
  Receipt Date: 20130228
  Transmission Date: 20140127
  Serious: No
  Sender: FDA-Public Use
  Company Number: None

PATIENT
  Age: 68 Year
  Sex: Female
  Weight: 64.86 kg

DRUGS (1)
  1. CRESTOR [Suspect]
     Dosage: 1 PER DAY
     Dates: start: 201110, end: 201112

REACTIONS (1)
  - Alopecia [None]
